FAERS Safety Report 19073234 (Version 1)
Quarter: 2021Q1

REPORT INFORMATION
  Report Type: Spontaneous
  Country: US (occurrence: US)
  Receive Date: 20210329
  Receipt Date: 20210329
  Transmission Date: 20210420
  Serious: No
  Sender: FDA-Public Use
  Company Number: None

PATIENT
  Age: 56 Year
  Sex: Female

DRUGS (1)
  1. AUBAGIO [Suspect]
     Active Substance: TERIFLUNOMIDE
     Route: 048

REACTIONS (9)
  - Hypoaesthesia [None]
  - Arthralgia [None]
  - Headache [None]
  - Feeling abnormal [None]
  - Pyrexia [None]
  - Paraesthesia [None]
  - Diarrhoea [None]
  - Chills [None]
  - Pain [None]

NARRATIVE: CASE EVENT DATE: 20210321
